FAERS Safety Report 18959239 (Version 1)
Quarter: 2021Q1

REPORT INFORMATION
  Report Type: Spontaneous
  Country: US (occurrence: US)
  Receive Date: 20210302
  Receipt Date: 20210302
  Transmission Date: 20210420
  Serious: No
  Sender: FDA-Public Use
  Company Number: US-MYLANLABS-2020M1040185

PATIENT
  Age: 11 Year
  Sex: Male

DRUGS (1)
  1. EPINEPHRINE INJECTION USP AUTO?INJECTOR [Suspect]
     Active Substance: EPINEPHRINE
     Indication: FOOD ALLERGY
     Dosage: UNK, PRN (AS NEEDED)
     Route: 065

REACTIONS (2)
  - Product quality issue [Unknown]
  - Product name confusion [Unknown]

NARRATIVE: CASE EVENT DATE: 20200415
